FAERS Safety Report 4561136-8 (Version None)
Quarter: 2005Q1

REPORT INFORMATION
  Report Type: 
  Country: None (occurrence: None)
  Receive Date: 20050121
  Receipt Date: 20050113
  Transmission Date: 20050727
  Serious: Yes (Other)
  Sender: FDA-Public Use
  Company Number: 2005-01-1019

PATIENT
  Age: 25 Year
  Sex: Female

DRUGS (3)
  1. INTRON A [Suspect]
     Indication: THROMBOCYTHAEMIA
     Dosage: SEE IMAGE
     Dates: start: 19930801, end: 19940101
  2. INTRON A [Suspect]
     Indication: THROMBOCYTHAEMIA
     Dosage: SEE IMAGE
     Dates: start: 19950101
  3. ASPIRIN [Concomitant]

REACTIONS (10)
  - ABORTION SPONTANEOUS [None]
  - AMNIOTIC FLUID VOLUME DECREASED [None]
  - CAESAREAN SECTION [None]
  - DRUG EXPOSURE DURING PREGNANCY [None]
  - OLIGOHYDRAMNIOS [None]
  - PLATELET COUNT INCREASED [None]
  - PREGNANCY [None]
  - PREMATURE BABY [None]
  - THERAPY NON-RESPONDER [None]
  - UMBILICAL CORD ABNORMALITY [None]
